FAERS Safety Report 16059339 (Version 1)
Quarter: 2019Q1

REPORT INFORMATION
  Report Type: Spontaneous
  Country: US (occurrence: US)
  Receive Date: 20190311
  Receipt Date: 20190311
  Transmission Date: 20190418
  Serious: No
  Sender: FDA-Public Use
  Company Number: US-ETHYPHARM-201900542

PATIENT
  Sex: Female

DRUGS (1)
  1. BUPRENORPHINE. [Suspect]
     Active Substance: BUPRENORPHINE
     Indication: DEPENDENCE
     Dosage: 8 MG TID
     Route: 060
     Dates: start: 201902

REACTIONS (2)
  - Drug ineffective [Unknown]
  - Product substitution issue [Unknown]
